FAERS Safety Report 23269174 (Version 2)
Quarter: 2024Q1

REPORT INFORMATION
  Report Type: Spontaneous
  Country: US (occurrence: US)
  Receive Date: 20231207
  Receipt Date: 20240105
  Transmission Date: 20240409
  Serious: No
  Sender: FDA-Public Use
  Company Number: US-BIOGEN-2023BI01239057

PATIENT
  Sex: Female

DRUGS (8)
  1. VUMERITY [Suspect]
     Active Substance: DIROXIMEL FUMARATE
     Indication: Multiple sclerosis
     Dosage: TAKE 2 CAPSULES BY MOUTH TWICE A DAY
     Route: 050
  2. PROZAC [Concomitant]
     Active Substance: FLUOXETINE HYDROCHLORIDE
     Route: 050
  3. FLEXERIL [Concomitant]
     Active Substance: CYCLOBENZAPRINE HYDROCHLORIDE
     Route: 050
  4. PEPCID [Concomitant]
     Active Substance: FAMOTIDINE
     Route: 050
  5. ALBUTEROL SULFATE [Concomitant]
     Active Substance: ALBUTEROL SULFATE
     Route: 050
  6. ACETAMINOPHEN\HYDROCODONE [Concomitant]
     Active Substance: ACETAMINOPHEN\HYDROCODONE
     Route: 050
  7. RISPERIDONE [Concomitant]
     Active Substance: RISPERIDONE
     Route: 050
  8. KEPPRA [Concomitant]
     Active Substance: LEVETIRACETAM
     Route: 050

REACTIONS (11)
  - Tooth loss [Unknown]
  - Jaw fracture [Unknown]
  - Secretion discharge [Unknown]
  - Abdominal discomfort [Unknown]
  - Teeth brittle [Unknown]
  - Gingival bleeding [Unknown]
  - Gingival pain [Unknown]
  - Tooth fracture [Unknown]
  - Abdominal distension [Unknown]
  - Fall [Recovered/Resolved]
  - Flushing [Unknown]
